FAERS Safety Report 4438177-4 (Version None)
Quarter: 2004Q3

REPORT INFORMATION
  Report Type: 
  Country: None (occurrence: None)
  Receive Date: 20040831
  Receipt Date: 20040608
  Transmission Date: 20050211
  Serious: No
  Sender: FDA-Public Use
  Company Number: US-GLAXOSMITHKLINE-A0513783A

PATIENT
  Sex: Male

DRUGS (5)
  1. WELLBUTRIN XL [Suspect]
     Indication: DEPRESSION
     Dosage: 150MG PER DAY
     Route: 048
  2. HYDROCHLOROTHIAZIDE [Concomitant]
     Dosage: 25MG PER DAY
  3. ZOCOR [Concomitant]
     Dosage: 80MG PER DAY
  4. MULTIVITAMIN [Concomitant]
  5. ACIPHEX [Concomitant]
     Dosage: 20MG TWICE PER DAY

REACTIONS (1)
  - TINNITUS [None]
